FAERS Safety Report 5294308-8 (Version None)
Quarter: 2007Q2

REPORT INFORMATION
  Report Type: 
  Country: None (occurrence: None)
  Receive Date: 20070412
  Receipt Date: 20070330
  Transmission Date: 20071010
  Serious: Yes (Other)
  Sender: FDA-Public Use
  Company Number: PHBS2007US06077

PATIENT
  Age: 61 Year
  Sex: Female

DRUGS (3)
  1. AREDIA [Suspect]
     Indication: MULTIPLE MYELOMA
  2. ZOMETA [Suspect]
     Indication: MULTIPLE MYELOMA
  3. STEROIDS NOS [Concomitant]

REACTIONS (1)
  - OSTEONECROSIS [None]
